FAERS Safety Report 8680418 (Version 6)
Quarter: 2014Q3

REPORT INFORMATION
  Report Type: Spontaneous
  Country: US (occurrence: US)
  Receive Date: 20120724
  Receipt Date: 20140715
  Transmission Date: 20150326
  Serious: Yes (Hospitalization, Disabling, Other)
  Sender: FDA-Public Use
  Company Number: US-MSD-1207USA007084

PATIENT
  Sex: Female
  Weight: 92.52 kg

DRUGS (2)
  1. FOSAMAX [Suspect]
     Active Substance: ALENDRONATE SODIUM
     Indication: OSTEOPENIA
     Dosage: UNK
     Route: 048
     Dates: start: 1998, end: 20120509
  2. ALENDRONATE SODIUM. [Suspect]
     Active Substance: ALENDRONATE SODIUM
     Indication: OSTEOPENIA
     Dosage: 70 MG, QW
     Route: 048
     Dates: end: 20120509

REACTIONS (30)
  - Low turnover osteopathy [Not Recovered/Not Resolved]
  - Renal failure chronic [Not Recovered/Not Resolved]
  - Gingival disorder [Unknown]
  - Osteoporosis [Unknown]
  - Patellofemoral pain syndrome [Unknown]
  - Device failure [Unknown]
  - Glaucoma [Unknown]
  - Breast prosthesis removal [Unknown]
  - Atrial fibrillation [Unknown]
  - Iron deficiency anaemia [Unknown]
  - Oedema peripheral [Unknown]
  - Spinal osteoarthritis [Unknown]
  - Adenocarcinoma of colon [Unknown]
  - Rotator cuff syndrome [Unknown]
  - Macular degeneration [Unknown]
  - Femur fracture [Recovered/Resolved]
  - Ligament operation [Unknown]
  - Diverticulum [Unknown]
  - Pain in extremity [Unknown]
  - Constipation [Recovered/Resolved]
  - Intramedullary rod insertion [Not Recovered/Not Resolved]
  - Asthma [Unknown]
  - Knee arthroplasty [Unknown]
  - Meniscus injury [Unknown]
  - Chronic obstructive pulmonary disease [Not Recovered/Not Resolved]
  - Knee arthroplasty [Unknown]
  - Sigmoidectomy [Unknown]
  - Pain [Unknown]
  - Osteoarthritis [Unknown]
  - Hypercholesterolaemia [Unknown]

NARRATIVE: CASE EVENT DATE: 20020827
